FAERS Safety Report 14360571 (Version 3)
Quarter: 2018Q4

REPORT INFORMATION
  Report Type: Spontaneous
  Country: FR (occurrence: FR)
  Receive Date: 20180106
  Receipt Date: 20181224
  Transmission Date: 20190204
  Serious: Yes (Other)
  Sender: FDA-Public Use
  Company Number: FR-AUROBINDO-AUR-APL-2018-000759

PATIENT
  Sex: Female

DRUGS (3)
  1. VOLTARENE (DICLOFENAC SODIUM) [Suspect]
     Active Substance: DICLOFENAC SODIUM
     Indication: PAIN
     Dosage: UNK
     Route: 048
     Dates: start: 2015, end: 2015
  2. APRANAX                            /00256201/ [Suspect]
     Active Substance: NAPROXEN
     Indication: PAIN
     Dosage: 2 DF, QD
     Route: 048
     Dates: start: 20140305, end: 20140307
  3. IBUPROFEN. [Suspect]
     Active Substance: IBUPROFEN
     Indication: CLUSTER HEADACHE
     Dosage: UNK
     Route: 048
     Dates: start: 201610, end: 201610

REACTIONS (1)
  - Alopecia areata [Recovered/Resolved]

NARRATIVE: CASE EVENT DATE: 20140301
